FAERS Safety Report 18297766 (Version 4)
Quarter: 2021Q2

REPORT INFORMATION
  Report Type: Spontaneous
  Country: US (occurrence: US)
  Receive Date: 20200922
  Receipt Date: 20210628
  Transmission Date: 20210717
  Serious: Yes (Hospitalization, Other)
  Sender: FDA-Public Use
  Company Number: US-GILEAD-2020-0495605

PATIENT
  Age: 53 Year
  Sex: Male
  Weight: 56.69 kg

DRUGS (32)
  1. TRUVADA [Suspect]
     Active Substance: EMTRICITABINE\TENOFOVIR DISOPROXIL FUMARATE
     Dosage: UNK
     Route: 065
     Dates: start: 2005, end: 20170517
  2. MEGACE [Concomitant]
     Active Substance: MEGESTROL ACETATE
  3. PREZISTA [Concomitant]
     Active Substance: DARUNAVIR ETHANOLATE
  4. ACETAMINOPHEN. [Concomitant]
     Active Substance: ACETAMINOPHEN
  5. ATRIPLA [Suspect]
     Active Substance: EFAVIRENZ\EMTRICITABINE\TENOFOVIR DISOPROXIL FUMARATE
     Indication: ACQUIRED IMMUNODEFICIENCY SYNDROME
     Dosage: UNK
     Route: 048
  6. DESCOVY [Concomitant]
     Active Substance: EMTRICITABINE\TENOFOVIR ALAFENAMIDE FUMARATE
  7. PARECOXIB [Concomitant]
     Active Substance: PARECOXIB
  8. PRAVASTATIN. [Concomitant]
     Active Substance: PRAVASTATIN
  9. PREDNISONE. [Concomitant]
     Active Substance: PREDNISONE
  10. SYMTUZA [Concomitant]
     Active Substance: COBICISTAT\DARUNAVIR\EMTRICITABINE\TENOFOVIR ALAFENAMIDE
  11. AMLODIPINE [Concomitant]
     Active Substance: AMLODIPINE BESYLATE
  12. NORVIR [Concomitant]
     Active Substance: RITONAVIR
  13. AMOXICILLIN. [Concomitant]
     Active Substance: AMOXICILLIN
  14. DEPAKOTE [Concomitant]
     Active Substance: DIVALPROEX SODIUM
  15. FLOMAX RELIEF [Concomitant]
     Active Substance: TAMSULOSIN HYDROCHLORIDE
  16. VIREAD [Suspect]
     Active Substance: TENOFOVIR DISOPROXIL FUMARATE
     Indication: ACQUIRED IMMUNODEFICIENCY SYNDROME
     Dosage: UNK
     Route: 048
  17. COMPLERA [Suspect]
     Active Substance: EMTRICITABINE\RILPIVIRINE HYDROCHLORIDE\TENOFOVIR DISOPROXIL FUMARATE
     Indication: ACQUIRED IMMUNODEFICIENCY SYNDROME
     Dosage: UNK
     Route: 048
  18. ACYCLOVIR [ACICLOVIR] [Concomitant]
     Active Substance: ACYCLOVIR
  19. ASPIRIN [ACETYLSALICYLIC ACID] [Concomitant]
     Active Substance: ASPIRIN
  20. TETRACYCLINE [Concomitant]
     Active Substance: TETRACYCLINE
  21. TRUVADA [Suspect]
     Active Substance: EMTRICITABINE\TENOFOVIR DISOPROXIL FUMARATE
     Indication: HIV INFECTION
     Dosage: UNK
     Route: 048
     Dates: start: 2005, end: 20160808
  22. PROAIR HFA [Concomitant]
     Active Substance: ALBUTEROL SULFATE
  23. CYANOCOBALAMINE [Concomitant]
     Active Substance: CYANOCOBALAMIN
  24. BACTRIM [Concomitant]
     Active Substance: SULFAMETHOXAZOLE\TRIMETHOPRIM
  25. PENICILLIN [BENZYLPENICILLIN] [Concomitant]
     Active Substance: PENICILLIN G
  26. PREDNISOLONE. [Concomitant]
     Active Substance: PREDNISOLONE
  27. TRUVADA [Suspect]
     Active Substance: EMTRICITABINE\TENOFOVIR DISOPROXIL FUMARATE
     Dosage: UNK
     Route: 065
     Dates: start: 20130206, end: 20170517
  28. STRIBILD [Suspect]
     Active Substance: COBICISTAT\ELVITEGRAVIR\EMTRICITABINE\TENOFOVIR DISOPROXIL FUMARATE
     Indication: ACQUIRED IMMUNODEFICIENCY SYNDROME
     Dosage: UNK
     Route: 048
  29. ANDROGEL [Concomitant]
     Active Substance: TESTOSTERONE
  30. IBUPROFEN. [Concomitant]
     Active Substance: IBUPROFEN
  31. OMEPRAZOLE. [Concomitant]
     Active Substance: OMEPRAZOLE
  32. RANITIDINE. [Concomitant]
     Active Substance: RANITIDINE

REACTIONS (17)
  - Skeletal injury [Unknown]
  - Scoliosis [Not Recovered/Not Resolved]
  - Anhedonia [Unknown]
  - Tooth loss [Not Recovered/Not Resolved]
  - Emotional distress [Unknown]
  - Renal injury [Unknown]
  - Dental caries [Not Recovered/Not Resolved]
  - Hip fracture [Not Recovered/Not Resolved]
  - Rib fracture [Not Recovered/Not Resolved]
  - Multiple fractures [Unknown]
  - Bone loss [Not Recovered/Not Resolved]
  - Osteoarthritis [Not Recovered/Not Resolved]
  - Tooth fracture [Not Recovered/Not Resolved]
  - Pain [Unknown]
  - Anxiety [Not Recovered/Not Resolved]
  - Depression [Not Recovered/Not Resolved]
  - Bone density decreased [Unknown]

NARRATIVE: CASE EVENT DATE: 2006
